FAERS Safety Report 5476794-3 (Version None)
Quarter: 2007Q4

REPORT INFORMATION
  Report Type: 
  Country: None (occurrence: None)
  Receive Date: 20071003
  Receipt Date: 20071003
  Transmission Date: 20080405
  Serious: Yes (Hospitalization)
  Sender: FDA-Public Use
  Company Number: None

PATIENT
  Sex: Female
  Weight: 81.6475 kg

DRUGS (2)
  1. VIVITROL [Suspect]
     Indication: ALCOHOLISM
     Dosage: 380MG MONTLY IM
     Route: 030
     Dates: start: 20070829
  2. VIVITROL [Suspect]
     Indication: BIPOLAR I DISORDER
     Dosage: 380MG MONTLY IM
     Route: 030
     Dates: start: 20070829

REACTIONS (5)
  - DELIRIUM [None]
  - DIZZINESS [None]
  - HYPERHIDROSIS [None]
  - MALAISE [None]
  - TREMOR [None]
